FAERS Safety Report 23409038 (Version 3)
Quarter: 2024Q1

REPORT INFORMATION
  Report Type: Spontaneous
  Country: DK (occurrence: DK)
  Receive Date: 20240117
  Receipt Date: 20240319
  Transmission Date: 20240409
  Serious: Yes (Hospitalization, Other)
  Sender: FDA-Public Use
  Company Number: DK-PFM-2024-00142

PATIENT
  Age: 57 Year
  Sex: Male
  Weight: 83.3 kg

DRUGS (20)
  1. BRAFTOVI [Suspect]
     Active Substance: ENCORAFENIB
     Indication: Colon cancer metastatic
     Dosage: 300 MG, DAILY
     Route: 048
     Dates: start: 20231012, end: 20231228
  2. BRAFTOVI [Suspect]
     Active Substance: ENCORAFENIB
     Dosage: 300 MG, DAILY
     Route: 048
     Dates: start: 20231230, end: 20240303
  3. CETUXIMAB [Concomitant]
     Active Substance: CETUXIMAB
     Indication: BRAF V600E mutation positive
     Dosage: UNK
     Route: 065
     Dates: start: 20231012, end: 20231027
  4. CETUXIMAB [Concomitant]
     Active Substance: CETUXIMAB
     Indication: Colon cancer
  5. ACETAMINOPHEN [Concomitant]
     Active Substance: ACETAMINOPHEN
     Indication: BRAF V600E mutation positive
     Dosage: 1000 MG, UP TO 4 TIMES A DAY (AS NEEDED)
     Route: 065
     Dates: start: 20231010, end: 20231109
  6. ACETAMINOPHEN [Concomitant]
     Active Substance: ACETAMINOPHEN
     Indication: Colon cancer
  7. ONDANSETRON [Concomitant]
     Active Substance: ONDANSETRON
     Indication: Premedication
     Dosage: 8 MG
     Route: 065
     Dates: start: 20231012, end: 20231026
  8. PREDNISOLONE [Concomitant]
     Active Substance: PREDNISOLONE
     Indication: Premedication
     Dosage: 50 MG
     Route: 065
     Dates: start: 20231012, end: 20231026
  9. LORAZEPAM [Concomitant]
     Active Substance: LORAZEPAM
     Dosage: 1 MG, 1X/DAY (ONCE)
     Route: 065
     Dates: start: 20231218
  10. PANITUMUMAB [Concomitant]
     Active Substance: PANITUMUMAB
     Dosage: 6 MG/G, BIWEEKLY
     Route: 042
     Dates: start: 20231027, end: 20240222
  11. INNOHEP [Concomitant]
     Active Substance: TINZAPARIN SODIUM
     Dosage: 240 MG, QD (1/DAY) ONCE DAILY AT  (EQUAL TO 16000 UNITS)
     Route: 065
     Dates: start: 20230727
  12. MORPHINE SULFATE [Concomitant]
     Active Substance: MORPHINE SULFATE
     Dosage: 10 MG, BID (2/DAY)
     Route: 065
     Dates: start: 20231011
  13. MORPHINE [Concomitant]
     Active Substance: MORPHINE
     Dosage: 10 MG, AS NEEDED (PRN)
     Route: 065
     Dates: start: 20231011
  14. TETRACYCLINE [Concomitant]
     Active Substance: TETRACYCLINE
     Dosage: 500 MG, BID (2/DAY)
     Route: 065
     Dates: start: 20231027
  15. HYDROCORTISONE [Concomitant]
     Active Substance: HYDROCORTISONE
     Dosage: UNK
     Route: 061
     Dates: start: 20231027
  16. POLYETHYLENE GLYCOL 3350\POTASSIUM CHLORIDE\SODIUM BICARBONATE\SODIUM [Concomitant]
     Active Substance: POLYETHYLENE GLYCOL 3350\POTASSIUM CHLORIDE\SODIUM BICARBONATE\SODIUM CHLORIDE
     Dosage: UNK, UP TO 3 TIMES A DAY, PRN
     Route: 065
     Dates: start: 20231010
  17. IMOLOPE [Concomitant]
     Dosage: 4 MG, UP TO 4 TIMES A DAY (AS NEEDED)
     Route: 065
     Dates: start: 20231003
  18. ZOMETA [Concomitant]
     Active Substance: ZOLEDRONIC ACID
     Dosage: 4 MG, MONTHLY (EVERY 4TH WEEK)
     Route: 065
     Dates: start: 20231208
  19. METOCLOPRAMIDE [Concomitant]
     Active Substance: METOCLOPRAMIDE
     Dosage: 10 MG, PRN
     Route: 065
  20. UNIKALK FORTE [Concomitant]
     Dosage: UNK, 1X/DAY (400 MG CALCIUM + 19 MICROGRAM VITAMIN D; ONCE DAILY)
     Route: 048
     Dates: start: 20240220, end: 20240306

REACTIONS (2)
  - Ileus [Recovered/Resolved]
  - Ileus [Not Recovered/Not Resolved]

NARRATIVE: CASE EVENT DATE: 20231228
